FAERS Safety Report 22147252 (Version 1)
Quarter: 2023Q1

REPORT INFORMATION
  Report Type: Other
  Country: CA (occurrence: CA)
  Receive Date: 20230328
  Receipt Date: 20230328
  Transmission Date: 20230418
  Serious: Yes (Other)
  Sender: FDA-Public Use
  Company Number: CA-KI BIOPHARMA, LLC-2023KAM00007

PATIENT
  Age: 23 Year
  Sex: Female

DRUGS (1)
  1. WINRHO SDF [Suspect]
     Active Substance: HUMAN RHO(D) IMMUNE GLOBULIN
     Indication: Prophylaxis against Rh isoimmunisation
     Dosage: 300 ?G, ONCE IV BOLUS
     Route: 042

REACTIONS (5)
  - Lip swelling [Recovering/Resolving]
  - Swollen tongue [Recovering/Resolving]
  - Respiratory rate increased [Recovering/Resolving]
  - Dyspnoea [Recovering/Resolving]
  - Panic attack [Recovering/Resolving]
